FAERS Safety Report 15189843 (Version 1)
Quarter: 2018Q3

REPORT INFORMATION
  Report Type: Spontaneous
  Country: FR (occurrence: FR)
  Receive Date: 20180724
  Receipt Date: 20180724
  Transmission Date: 20181010
  Serious: Yes (Death, Other)
  Sender: FDA-Public Use
  Company Number: FR-SA-2018SA200178

PATIENT
  Age: 78 Year
  Sex: Male

DRUGS (12)
  1. LOVENOX [Suspect]
     Active Substance: ENOXAPARIN SODIUM
     Route: 058
     Dates: start: 20180507
  2. AUGMENTIN [Suspect]
     Active Substance: AMOXICILLIN\CLAVULANATE POTASSIUM
     Indication: PROPHYLAXIS
     Route: 048
     Dates: start: 20180512, end: 20180518
  3. XATRAL [ALFUZOSIN HYDROCHLORIDE] [Suspect]
     Active Substance: ALFUZOSIN
     Indication: PRODUCT USED FOR UNKNOWN INDICATION
     Route: 048
     Dates: start: 20180511
  4. NEBIVOLOL. [Concomitant]
     Active Substance: NEBIVOLOL
  5. PANTOPRAZOLE [Concomitant]
     Active Substance: PANTOPRAZOLE
  6. DIFFU K [Suspect]
     Active Substance: POTASSIUM CHLORIDE
     Indication: HYPOKALAEMIA
     Route: 048
     Dates: start: 20180507, end: 20180518
  7. ASASANTINE [Concomitant]
     Active Substance: ASPIRIN\DIPYRIDAMOLE
  8. RILMENIDINE [Concomitant]
     Active Substance: RILMENIDINE
  9. FUROSEMIDE. [Concomitant]
     Active Substance: FUROSEMIDE
  10. DOLIPRANE [Suspect]
     Active Substance: ACETAMINOPHEN
     Indication: PAIN
     Route: 048
     Dates: start: 20180507
  11. SPASFON LYOC [Suspect]
     Active Substance: PHLOROGLUCINOL
     Indication: PAIN
     Route: 048
     Dates: start: 20180507
  12. FOSINOPRIL [Concomitant]
     Active Substance: FOSINOPRIL
     Dosage: UNK, UNK
     Route: 065

REACTIONS (3)
  - Electrocardiogram T wave peaked [Fatal]
  - Renal failure [Fatal]
  - Hyperkalaemia [Fatal]

NARRATIVE: CASE EVENT DATE: 20180515
